FAERS Safety Report 24650410 (Version 1)
Quarter: 2024Q4

REPORT INFORMATION
  Report Type: Report from Study
  Country: DE (occurrence: DE)
  Receive Date: 20241122
  Receipt Date: 20241122
  Transmission Date: 20250114
  Serious: No
  Sender: ROCHE
  Company Number: DE-ML42393-1053-009-1_0

PATIENT
  Age: 28 Year
  Sex: Male

DRUGS (4)
  1. OCRELIZUMAB [Suspect]
     Active Substance: OCRELIZUMAB
     Indication: Relapsing multiple sclerosis
     Dosage: DOSE FREQUENCY: ONCE
     Route: 042
     Dates: start: 20240517
  2. ETORICOXIB [Concomitant]
     Active Substance: ETORICOXIB
     Indication: Rheumatoid arthritis
     Dosage: DOSE: 90?DOSE FREQUENCY: PRN (AS NEEDED)
     Route: 048
     Dates: start: 2023
  3. METAMIZOLE [Concomitant]
     Active Substance: METAMIZOLE
     Dosage: DOSE: 650?DOSE FREQUENCY: PRN (AS NEEDED)
     Route: 048
     Dates: start: 20240424
  4. IBUPROFEN [Concomitant]
     Active Substance: IBUPROFEN
     Indication: Headache
     Dosage: DOSE: 600?DOSE FREQUENCY: PRN (AS NEEDED)
     Route: 048
     Dates: start: 20240516

REACTIONS (1)
  - COVID-19 [Recovered/Resolved]

NARRATIVE: CASE EVENT DATE: 20240901
